FAERS Safety Report 23142922 (Version 1)
Quarter: 2023Q4

REPORT INFORMATION
  Report Type: Report from Study
  Country: TW (occurrence: None)
  Receive Date: 20231103
  Receipt Date: 20231103
  Transmission Date: 20240110
  Serious: Yes (Other)
  Sender: FDA-Public Use
  Company Number: 2023A246539

PATIENT
  Sex: Male

DRUGS (2)
  1. IMFINZI [Suspect]
     Active Substance: DURVALUMAB
     Indication: Lung neoplasm malignant
     Dosage: 1000.0MG UNKNOWN
     Route: 041
     Dates: start: 20221221, end: 20221221
  2. IMFINZI [Suspect]
     Active Substance: DURVALUMAB
     Indication: Lung neoplasm malignant
     Dosage: 1440.0MG UNKNOWN
     Route: 041
     Dates: start: 20230106, end: 20230818

REACTIONS (2)
  - Lung carcinoma cell type unspecified recurrent [Unknown]
  - Drug effect less than expected [Unknown]
